FAERS Safety Report 9196032 (Version 3)
Quarter: 2014Q1

REPORT INFORMATION
  Report Type: Report from Study
  Country: CA (occurrence: CA)
  Receive Date: 20130328
  Receipt Date: 20140306
  Transmission Date: 20141002
  Serious: Yes (Hospitalization)
  Sender: FDA-Public Use
  Company Number: CA-JNJFOC-20130312796

PATIENT
  Age: 24 Year
  Sex: Male
  Weight: 53.1 kg

DRUGS (2)
  1. REMICADE [Suspect]
     Indication: CROHN^S DISEASE
     Route: 042
  2. REMICADE [Suspect]
     Indication: CROHN^S DISEASE
     Route: 042

REACTIONS (4)
  - Fistula [Unknown]
  - Crohn^s disease [Recovering/Resolving]
  - Intestinal perforation [Recovering/Resolving]
  - Postoperative fever [Recovering/Resolving]
